FAERS Safety Report 25599248 (Version 1)
Quarter: 2025Q3

REPORT INFORMATION
  Report Type: Report from Study
  Country: AU (occurrence: AU)
  Receive Date: 20250724
  Receipt Date: 20250724
  Transmission Date: 20251021
  Serious: Yes (Hospitalization)
  Sender: TAKEDA
  Company Number: AU-TAKEDA-2025TUS036147

PATIENT
  Sex: Male

DRUGS (5)
  1. VEDOLIZUMAB [Suspect]
     Active Substance: VEDOLIZUMAB
     Indication: Colitis ulcerative
  2. VEDOLIZUMAB [Suspect]
     Active Substance: VEDOLIZUMAB
     Indication: Colitis ulcerative
     Dosage: 108 MILLIGRAM, Q2WEEKS
     Dates: start: 20250722
  3. VEDOLIZUMAB [Suspect]
     Active Substance: VEDOLIZUMAB
  4. XELJANZ [Concomitant]
     Active Substance: TOFACITINIB CITRATE
  5. TOFACITINIB [Concomitant]
     Active Substance: TOFACITINIB

REACTIONS (1)
  - Lower limb fracture [Recovering/Resolving]
